FAERS Safety Report 8574853-X (Version None)
Quarter: 2012Q2

REPORT INFORMATION
  Report Type: 
  Country: None (occurrence: None)
  Receive Date: 20120423
  Receipt Date: 20100308
  Transmission Date: 20120825
  Serious: Yes (Other)
  Sender: FDA-Public Use
  Company Number: PHEH2009US15494

PATIENT
  Age: 78 Year
  Sex: Female

DRUGS (6)
  1. PREDNISONE TAB [Suspect]
     Dosage: 20 MG DAILY, ORAL
     Route: 048
     Dates: start: 20091028, end: 20091103
  2. EXJADE [Suspect]
     Dosage: 1500 MG AT BREAKFAST WITH 7 OZ FLUID, ORAL
     Route: 048
     Dates: start: 20091022, end: 20091103
  3. EXJADE [Suspect]
     Dosage: 1500 MG AT BREAKFAST WITH 7 OZ FLUID, ORAL
     Route: 048
     Dates: start: 20090101, end: 20090101
  4. HYDROCHLOROTHIAZIDE [Concomitant]
  5. POTASSIUM CHLORIDE (POTASSIUM CHLORIDE) TABLET [Concomitant]
  6. VITAMIN B6 [Concomitant]

REACTIONS (2)
  - RASH [None]
  - DRUG HYPERSENSITIVITY [None]
